FAERS Safety Report 11863441 (Version 2)
Quarter: 2016Q1

REPORT INFORMATION
  Report Type: Spontaneous
  Country: US (occurrence: US)
  Receive Date: 20151223
  Receipt Date: 20160115
  Transmission Date: 20160526
  Serious: Yes (Hospitalization)
  Sender: FDA-Public Use
  Company Number: US-BAYER-2015-494116

PATIENT
  Age: 22 Year
  Sex: Female
  Weight: 62.13 kg

DRUGS (4)
  1. MIRENA [Suspect]
     Active Substance: LEVONORGESTREL
     Indication: CONTRACEPTION
     Dosage: 20 MCG/24HR, CONT
     Route: 015
     Dates: start: 20090317, end: 20090812
  2. TORADOL [Concomitant]
     Active Substance: KETOROLAC TROMETHAMINE
     Route: 042
  3. MORPHINE [Concomitant]
     Active Substance: MORPHINE
     Route: 042
  4. ZOFRAN [Concomitant]
     Active Substance: ONDANSETRON HYDROCHLORIDE
     Route: 042

REACTIONS (4)
  - Uterine perforation [None]
  - Device issue [None]
  - Device use error [None]
  - Menorrhagia [None]

NARRATIVE: CASE EVENT DATE: 20090811
